FAERS Safety Report 5086677-9 (Version None)
Quarter: 2006Q3

REPORT INFORMATION
  Report Type: 
  Country: None (occurrence: None)
  Receive Date: 20060823
  Receipt Date: 20051221
  Transmission Date: 20061208
  Serious: No
  Sender: FDA-Public Use
  Company Number: US-GLAXOSMITHKLINE-A0586661A

PATIENT
  Age: 39 Year
  Sex: Male

DRUGS (1)
  1. MALARONE [Suspect]
     Indication: MALARIA PROPHYLAXIS
     Route: 048
     Dates: start: 20051026, end: 20051112

REACTIONS (3)
  - HAEMATURIA [None]
  - HAEMORRHAGE URINARY TRACT [None]
  - INFLUENZA LIKE ILLNESS [None]
